FAERS Safety Report 9101569 (Version 1)
Quarter: 2013Q1

REPORT INFORMATION
  Report Type: Spontaneous
  Country: IT (occurrence: IT)
  Receive Date: 20130215
  Receipt Date: 20130215
  Transmission Date: 20140127
  Serious: Yes (Other)
  Sender: FDA-Public Use
  Company Number: IT-PFIZER INC-2013060035

PATIENT
  Age: 51 Year
  Sex: Male

DRUGS (2)
  1. XANAX [Suspect]
     Dosage: UNK
     Dates: start: 20120821, end: 20120821
  2. CITALOPRAM [Suspect]
     Dosage: UNK
     Dates: start: 20120821, end: 20120821

REACTIONS (2)
  - Loss of consciousness [Recovered/Resolved]
  - Toxicity to various agents [Recovered/Resolved]
